FAERS Safety Report 14207959 (Version 1)
Quarter: 2017Q4

REPORT INFORMATION
  Report Type: Spontaneous
  Country: US (occurrence: None)
  Receive Date: 20171114
  Receipt Date: 20171114
  Transmission Date: 20180321
  Serious: No
  Sender: FDA-Public Use
  Company Number: None

PATIENT
  Age: 50 Year
  Sex: Female

DRUGS (1)
  1. GLATOPA [Suspect]
     Active Substance: GLATIRAMER ACETATE
     Indication: MULTIPLE SCLEROSIS
     Route: 058
     Dates: start: 20170720, end: 20171004

REACTIONS (7)
  - Erythema [None]
  - Injection site pain [None]
  - Swelling [None]
  - Injection site mass [None]
  - Discomfort [None]
  - Injection site swelling [None]
  - Pain [None]

NARRATIVE: CASE EVENT DATE: 20170918
